FAERS Safety Report 10163317 (Version 2)
Quarter: 2014Q2

REPORT INFORMATION
  Report Type: Report from Study
  Country: US (occurrence: US)
  Receive Date: 20140509
  Receipt Date: 20140509
  Transmission Date: 20141212
  Serious: Yes (Death, Hospitalization)
  Sender: FDA-Public Use
  Company Number: US-BAYER-2013-155706

PATIENT
  Age: 78 Year
  Sex: Male

DRUGS (11)
  1. NEXAVAR [Suspect]
     Indication: HEPATIC CANCER
     Dosage: 200 MG, BID
     Route: 048
     Dates: start: 20131204, end: 201312
  2. NEXAVAR [Suspect]
     Indication: HEPATIC CANCER
     Dosage: 400 MG, BID
     Route: 048
     Dates: start: 201312, end: 20131220
  3. NEXAVAR [Suspect]
     Indication: HEPATIC CANCER
     Dosage: 400 MG, BID
     Route: 048
  4. ALDACTONE [SPIRONOLACTONE] [Concomitant]
  5. BARACLUDE [Concomitant]
  6. GLIPIZIDE [Concomitant]
  7. LANTUS [Concomitant]
  8. LACTULOSE [Concomitant]
  9. PROPRANOLOL [Concomitant]
  10. VIREAD [Concomitant]
  11. PROCHLORPERAZINE [Concomitant]

REACTIONS (8)
  - Sepsis [Fatal]
  - Dehydration [None]
  - Encephalopathy [None]
  - Electrolyte imbalance [None]
  - Fatigue [None]
  - Decreased appetite [None]
  - Nausea [None]
  - Vomiting [None]
